FAERS Safety Report 7794243-7 (Version None)
Quarter: 2011Q4

REPORT INFORMATION
  Report Type: 
  Country: None (occurrence: None)
  Receive Date: 20111004
  Receipt Date: 20110926
  Transmission Date: 20120403
  Serious: Yes (Other)
  Sender: FDA-Public Use
  Company Number: US-ASTELLAS-2011US005799

PATIENT
  Sex: Female

DRUGS (5)
  1. PROGRAF [Suspect]
     Dosage: UNSPECIFIED DOSE INCREASE
     Route: 065
     Dates: start: 20110101
  2. PROGRAF [Suspect]
     Indication: LIVER TRANSPLANT
     Dosage: 2 MG, BID
     Route: 065
     Dates: end: 20110101
  3. METAMUCIL-2 [Suspect]
     Indication: SMALL INTESTINAL OBSTRUCTION
  4. NEXIUM [Concomitant]
     Indication: PRODUCT USED FOR UNKNOWN INDICATION
     Dosage: UNK
     Route: 065
  5. METAMUCIL-2 [Suspect]
     Indication: COLONIC STENOSIS
     Dosage: UNK
     Route: 048

REACTIONS (9)
  - POSTOPERATIVE ADHESION [None]
  - INTESTINAL OBSTRUCTION [None]
  - INCORRECT STORAGE OF DRUG [None]
  - COLONIC STENOSIS [None]
  - LIVER FUNCTION TEST ABNORMAL [None]
  - OVARIAN CYST [None]
  - ABDOMINAL MASS [None]
  - IMMUNOSUPPRESSANT DRUG LEVEL DECREASED [None]
  - DIVERTICULUM [None]
